FAERS Safety Report 9441721 (Version 1)
Quarter: 2013Q3

REPORT INFORMATION
  Report Type: Spontaneous
  Country: US (occurrence: US)
  Receive Date: 20130806
  Receipt Date: 20130806
  Transmission Date: 20140515
  Serious: No
  Sender: FDA-Public Use
  Company Number: US-009507513-1308USA000035

PATIENT
  Age: 49 Year
  Sex: Male

DRUGS (1)
  1. VICTRELIS [Suspect]
     Indication: CHRONIC HEPATITIS C
     Dosage: 800 MG, TID
     Route: 048
     Dates: start: 20130613

REACTIONS (4)
  - Gastric infection [Unknown]
  - Skin discolouration [Unknown]
  - Pruritus [Unknown]
  - Skin burning sensation [Unknown]
